FAERS Safety Report 7244701-9 (Version None)
Quarter: 2011Q1

REPORT INFORMATION
  Report Type: 
  Country: None (occurrence: None)
  Receive Date: 20110126
  Receipt Date: 20110118
  Transmission Date: 20110831
  Serious: Yes (Hospitalization)
  Sender: FDA-Public Use
  Company Number: US-BIOGENIDEC-2008BI030222

PATIENT
  Age: 54 Year
  Sex: Female
  Weight: 56 kg

DRUGS (2)
  1. HIGH BLOOD PRESSURE MEDICATION (NOS) [Concomitant]
     Indication: HYPERTENSION
  2. AVONEX [Suspect]
     Indication: MULTIPLE SCLEROSIS
     Route: 030
     Dates: start: 20060101

REACTIONS (10)
  - CHEST PAIN [None]
  - WEIGHT DECREASED [None]
  - ARTHRALGIA [None]
  - ASTHENIA [None]
  - INFLUENZA LIKE ILLNESS [None]
  - MYOCARDIAL INFARCTION [None]
  - MULTIPLE SCLEROSIS RELAPSE [None]
  - CONTUSION [None]
  - DECREASED APPETITE [None]
  - CHILLS [None]
